FAERS Safety Report 13047993 (Version 5)
Quarter: 2017Q2

REPORT INFORMATION
  Report Type: Report from Study
  Country: JP (occurrence: JP)
  Receive Date: 20161220
  Receipt Date: 20170424
  Transmission Date: 20170830
  Serious: Yes (Death, Other)
  Sender: FDA-Public Use
  Company Number: JP-GILEAD-2016-0249499

PATIENT
  Age: 21 Year
  Sex: Male

DRUGS (7)
  1. OPSUMIT [Concomitant]
     Active Substance: MACITENTAN
  2. ADEMPAS [Concomitant]
     Active Substance: RIOCIGUAT
  3. AMBRISENTAN [Suspect]
     Active Substance: AMBRISENTAN
     Dosage: 5 MG, QD
     Route: 048
     Dates: start: 20140610, end: 20150715
  4. AMBRISENTAN [Suspect]
     Active Substance: AMBRISENTAN
     Indication: PULMONARY ARTERIAL HYPERTENSION
     Dosage: UNK, QD
     Route: 048
     Dates: end: 201512
  5. TREPROST [Concomitant]
     Active Substance: TREPROSTINIL
  6. NEXAVAR [Concomitant]
     Active Substance: SORAFENIB
  7. REVATIO [Concomitant]
     Active Substance: SILDENAFIL CITRATE
     Indication: PULMONARY ARTERIAL HYPERTENSION
     Dosage: 60 MG, 1D
     Dates: start: 201206, end: 20150715

REACTIONS (3)
  - Pulmonary hypertensive crisis [Unknown]
  - Pulmonary hypertension [Fatal]
  - Haemoptysis [Unknown]

NARRATIVE: CASE EVENT DATE: 20160929
